FAERS Safety Report 5195890-1 (Version None)
Quarter: 2007Q1

REPORT INFORMATION
  Report Type: 
  Country: None (occurrence: None)
  Receive Date: 20070102
  Receipt Date: 20061229
  Transmission Date: 20070707
  Serious: Yes (Other)
  Sender: FDA-Public Use
  Company Number: JP-GLAXOSMITHKLINE-B0451972A

PATIENT
  Age: 50 Year
  Sex: Male

DRUGS (1)
  1. MODACIN [Suspect]
     Indication: DRUG USE FOR UNKNOWN INDICATION
     Route: 042

REACTIONS (2)
  - BLOOD BILIRUBIN INCREASED [None]
  - ORAL MUCOSAL DISORDER [None]
